FAERS Safety Report 9853249 (Version 2)
Quarter: 2014Q1

REPORT INFORMATION
  Report Type: Spontaneous
  Country: BE (occurrence: None)
  Receive Date: 20140127
  Receipt Date: 20140220
  Transmission Date: 20141002
  Serious: Yes (Other)
  Sender: FDA-Public Use
  Company Number: AUR-APL-2014-00451

PATIENT
  Age: 69 Year
  Sex: Male

DRUGS (11)
  1. FLUCONAZOLE (FLUCONAZOLE) [Suspect]
     Indication: TENOSYNOVITIS
     Dosage: 800 MG, LOADING DOSE, UNKNOWN
  2. VORICONAZOLE (VORICONAZOLE) [Suspect]
     Indication: TENOSYNOVITIS
     Dosage: UNKNOWN
  3. DIGOXIN (DIGOXIN) [Concomitant]
  4. MOLSIDOMINE (MOLSIDOMINE) [Concomitant]
  5. ALTIZIDE (ALTIZIDE) [Concomitant]
  6. SPIRONOLACTONE (SPIRONOLACTONE) [Concomitant]
  7. AMITRIPTYLINE (AMITRIPTYLINE) [Concomitant]
  8. TRAMADOL (TRAMADOL) [Concomitant]
  9. INSULIN (INSULIN) [Concomitant]
  10. FENOTEROL W/IPRATROPIUM (FENOTEROL W/IPRATROPIUM) [Concomitant]
  11. SALMETEROL AND FLUTICASON (FLUTICASONE W/ SALMETEROL) [Concomitant]

REACTIONS (4)
  - Treatment failure [None]
  - Pathogen resistance [None]
  - Drug resistance [None]
  - Bacterial sepsis [None]
